FAERS Safety Report 19224028 (Version 1)
Quarter: 2021Q2

REPORT INFORMATION
  Report Type: Spontaneous
  Country: US (occurrence: US)
  Receive Date: 20210506
  Receipt Date: 20210506
  Transmission Date: 20210717
  Serious: Yes (Hospitalization, Other)
  Sender: FDA-Public Use
  Company Number: None

PATIENT
  Age: 66 Year
  Sex: Female

DRUGS (1)
  1. BAMLANIVIMAB. [Suspect]
     Active Substance: BAMLANIVIMAB
     Indication: COVID-19
     Dates: start: 20210301, end: 20210301

REACTIONS (13)
  - Dizziness [None]
  - Metabolic acidosis [None]
  - Chills [None]
  - Lung opacity [None]
  - Cough [None]
  - Pain [None]
  - Pneumonia [None]
  - Condition aggravated [None]
  - Hyperglycaemic hyperosmolar nonketotic syndrome [None]
  - Vomiting [None]
  - Pneumonitis [None]
  - Diabetic ketoacidosis [None]
  - Dehydration [None]

NARRATIVE: CASE EVENT DATE: 20210301
